FAERS Safety Report 21697905 (Version 2)
Quarter: 2022Q4

REPORT INFORMATION
  Report Type: Spontaneous
  Country: BR (occurrence: BR)
  Receive Date: 20221208
  Receipt Date: 20221215
  Transmission Date: 20230112
  Serious: Yes (Hospitalization, Other)
  Sender: FDA-Public Use
  Company Number: BR-BoehringerIngelheim-2022-BI-206669

PATIENT
  Age: 68 Year
  Sex: Female
  Weight: 48 kg

DRUGS (4)
  1. CLONIDINE [Suspect]
     Active Substance: CLONIDINE
     Indication: Hypertension
     Dosage: 0.5 DF 1/0.5 DAY(S) (HALF A TABLET IN THE MORNING AND THE OTHER HALF AT NIGHT)
     Route: 048
     Dates: start: 2014, end: 202211
  2. CLONIDINE [Suspect]
     Active Substance: CLONIDINE
     Indication: Tachycardia
     Dosage: 2 TABLETS A DAY, ?ONE IN THE MORNING AND THE OTHER AT NIGHT?(2 DF)
     Route: 048
     Dates: start: 2014, end: 202211
  3. OMEPRAZOLE [Concomitant]
     Active Substance: OMEPRAZOLE
     Indication: Gastritis
     Route: 048
     Dates: start: 202205
  4. HYDROCHLOROTHIAZIDE [Concomitant]
     Active Substance: HYDROCHLOROTHIAZIDE
     Indication: Hypertension
     Dosage: 1 TABLET IN THE MORNING SINCE 2 OR 3 YEARS
     Route: 048

REACTIONS (5)
  - Cerebrovascular accident [Recovered/Resolved]
  - Blood pressure increased [Not Recovered/Not Resolved]
  - Product availability issue [Not Recovered/Not Resolved]
  - Malaise [Not Recovered/Not Resolved]
  - Somnolence [Unknown]

NARRATIVE: CASE EVENT DATE: 20200101
